FAERS Safety Report 7419772-7 (Version None)
Quarter: 2011Q2

REPORT INFORMATION
  Report Type: 
  Country: None (occurrence: None)
  Receive Date: 20110413
  Receipt Date: 20110413
  Transmission Date: 20111010
  Serious: Yes (Life-Threatening)
  Sender: FDA-Public Use
  Company Number: None

PATIENT
  Age: 37 Year
  Sex: Male
  Weight: 61.2356 kg

DRUGS (3)
  1. SAPHRIS [Suspect]
     Dosage: 10MG IBID SL
     Route: 060
  2. CLONAZEPAM [Concomitant]
  3. EFFEXOR XR [Concomitant]

REACTIONS (1)
  - AGGRESSION [None]
